FAERS Safety Report 10773603 (Version 2)
Quarter: 2015Q2

REPORT INFORMATION
  Report Type: Other
  Country: US (occurrence: US)
  Receive Date: 20150208
  Receipt Date: 20150604
  Transmission Date: 20150821
  Serious: Yes (Other)
  Sender: FDA-Public Use
  Company Number: US-ACORDA-ACO_107076_2014

PATIENT
  Age: 60 Year
  Sex: Female
  Weight: 74.83 kg

DRUGS (5)
  1. AMPYRA [Suspect]
     Active Substance: DALFAMPRIDINE
     Indication: MULTIPLE SCLEROSIS
     Dosage: 10MG BID
     Route: 065
     Dates: start: 20141013, end: 20141114
  2. AMPYRA [Suspect]
     Active Substance: DALFAMPRIDINE
     Indication: GAIT DISTURBANCE
     Dosage: 10 MG, BID
     Route: 048
     Dates: start: 20150113
  3. TYSABRI [Concomitant]
     Active Substance: NATALIZUMAB
     Indication: PRODUCT USED FOR UNKNOWN INDICATION
     Dosage: UNK
     Route: 065
  4. ELMIRON [Concomitant]
     Active Substance: PENTOSAN POLYSULFATE SODIUM
     Indication: PRODUCT USED FOR UNKNOWN INDICATION
     Dosage: UNK
     Route: 065
  5. AMPYRA [Suspect]
     Active Substance: DALFAMPRIDINE
     Dosage: 10 MG, QD
     Dates: end: 20150501

REACTIONS (7)
  - Dysuria [Not Recovered/Not Resolved]
  - Cholelithiasis [Unknown]
  - Renal disorder [Unknown]
  - Micturition urgency [Unknown]
  - Inappropriate schedule of drug administration [Unknown]
  - Bladder disorder [Unknown]
  - Condition aggravated [Unknown]

NARRATIVE: CASE EVENT DATE: 201412
